FAERS Safety Report 23730688 (Version 1)
Quarter: 2024Q2

REPORT INFORMATION
  Report Type: Spontaneous
  Country: US (occurrence: US)
  Receive Date: 20240411
  Receipt Date: 20240411
  Transmission Date: 20240716
  Serious: Yes (Hospitalization)
  Sender: FDA-Public Use
  Company Number: US-GRAVITIPHARMA-GRA-2404-US-LIT-0068

PATIENT
  Age: 40 Year
  Sex: Male

DRUGS (6)
  1. FENOFIBRATE [Suspect]
     Active Substance: FENOFIBRATE
     Indication: Lipodystrophy acquired
  2. LEPTIN HUMAN [Suspect]
     Active Substance: LEPTIN HUMAN
     Indication: Lipodystrophy acquired
  3. NIACIN [Suspect]
     Active Substance: NIACIN
     Indication: Lipodystrophy acquired
  4. OMEGA-3 FATTY ACIDS [Suspect]
     Active Substance: OMEGA-3 FATTY ACIDS
     Indication: Lipodystrophy acquired
  5. INSULIN NOS [Concomitant]
     Active Substance: INSULIN NOS
     Indication: Type 2 diabetes mellitus
  6. ROSUVASTATIN [Concomitant]
     Active Substance: ROSUVASTATIN
     Indication: Blood triglycerides

REACTIONS (1)
  - Drug ineffective [Unknown]
